FAERS Safety Report 20483824 (Version 1)
Quarter: 2022Q1

REPORT INFORMATION
  Report Type: Spontaneous
  Country: US (occurrence: None)
  Receive Date: 20220216
  Receipt Date: 20220216
  Transmission Date: 20220423
  Serious: Yes (unspecified)
  Sender: FDA-Public Use
  Company Number: None

PATIENT
  Age: 56 Year
  Sex: Male
  Weight: 78.5 kg

DRUGS (1)
  1. RITUXAN [Suspect]
     Active Substance: RITUXIMAB
     Indication: Lymphoma
     Dosage: FREQUENCY : WEEKLY;?
     Route: 041
     Dates: start: 20220211

REACTIONS (5)
  - Cough [None]
  - Flushing [None]
  - Chest discomfort [None]
  - Infusion related reaction [None]
  - Vomiting [None]

NARRATIVE: CASE EVENT DATE: 20220211
